FAERS Safety Report 4905686-0 (Version None)
Quarter: 2006Q1

REPORT INFORMATION
  Report Type: 
  Country: None (occurrence: None)
  Receive Date: 20060203
  Receipt Date: 20060124
  Transmission Date: 20060701
  Serious: Yes (Hospitalization)
  Sender: FDA-Public Use
  Company Number: 2005BI021114

PATIENT
  Age: 57 Year
  Sex: Female

DRUGS (7)
  1. AVONEX [Suspect]
     Indication: MULTIPLE SCLEROSIS
     Dosage: 30 UG;QW;IM
     Route: 030
     Dates: start: 19991115
  2. MARIJUANA [Concomitant]
  3. NEURONTIN [Concomitant]
  4. LIPITOR [Concomitant]
  5. ASPIRIN [Concomitant]
  6. ATIVAN [Concomitant]
  7. PROZAC [Concomitant]

REACTIONS (12)
  - ABASIA [None]
  - CONVULSION [None]
  - DEEP VEIN THROMBOSIS [None]
  - DEPRESSED LEVEL OF CONSCIOUSNESS [None]
  - DRUG DOSE OMISSION [None]
  - DRUG SCREEN POSITIVE [None]
  - ESCHERICHIA URINARY TRACT INFECTION [None]
  - EXTENSOR PLANTAR RESPONSE [None]
  - LIVER FUNCTION TEST ABNORMAL [None]
  - NUCLEAR MAGNETIC RESONANCE IMAGING BRAIN ABNORMAL [None]
  - SEPSIS [None]
  - SKIN ULCER [None]
